FAERS Safety Report 9539332 (Version 1)
Quarter: 2013Q2

REPORT INFORMATION
  Report Type: Spontaneous
  Country: US (occurrence: None)
  Receive Date: 20130517
  Receipt Date: 20130517
  Transmission Date: 20140414
  Serious: No
  Sender: FDA-Public Use
  Company Number: 1000042900

PATIENT
  Age: 47 Year
  Sex: Female

DRUGS (6)
  1. VIIBRYD (VILAZODONE HYDROCHLORIDE) (TABLETS) [Suspect]
     Indication: DEPRESSION
     Route: 048
     Dates: start: 201301, end: 201302
  2. ALPRAZOLAM (ALPRAZOLAM) [Concomitant]
  3. BENICAR (OLMESARTAN MEDOXOMIL) [Concomitant]
  4. METOPROLOL (METOPOROLOL) [Concomitant]
  5. BUSPIRONE (BUSPIRONE) [Concomitant]
  6. CRESTOR (ROSUVASTATIN CALCIUM) [Concomitant]

REACTIONS (4)
  - Confusional state [None]
  - Heart rate increased [None]
  - Medication error [None]
  - Paraesthesia [None]
